FAERS Safety Report 22247890 (Version 1)
Quarter: 2023Q2

REPORT INFORMATION
  Report Type: Spontaneous
  Country: US (occurrence: US)
  Receive Date: 20230425
  Receipt Date: 20230425
  Transmission Date: 20230721
  Serious: No
  Sender: FDA-Public Use
  Company Number: US-JNJFOC-20230424399

PATIENT
  Age: 69 Year
  Sex: Female

DRUGS (1)
  1. ZYRTEC [Suspect]
     Active Substance: CETIRIZINE HYDROCHLORIDE
     Indication: Seasonal allergy
     Dosage: STARTED THE PRODUCT 10 YEARS AGO
     Route: 065
     Dates: start: 2013

REACTIONS (3)
  - Somnolence [Unknown]
  - Overdose [Unknown]
  - Wrong technique in product usage process [Unknown]
